FAERS Safety Report 14933816 (Version 1)
Quarter: 2018Q2

REPORT INFORMATION
  Report Type: Spontaneous
  Country: US (occurrence: US)
  Receive Date: 20180524
  Receipt Date: 20180524
  Transmission Date: 20180711
  Serious: No
  Sender: FDA-Public Use
  Company Number: US-TARO-2018TAR00118

PATIENT
  Age: 3 Month
  Sex: Female
  Weight: 7.26 kg

DRUGS (3)
  1. FEVERALL INFANTS [Suspect]
     Active Substance: ACETAMINOPHEN
     Dosage: 80 MG, AS NEEDED
     Route: 054
     Dates: start: 20180209
  2. FEVERALL INFANTS [Suspect]
     Active Substance: ACETAMINOPHEN
     Indication: PYREXIA
     Dosage: 80 MG, AS NEEDED
     Route: 054
     Dates: start: 201801, end: 201801
  3. SUPRAX [Suspect]
     Active Substance: CEFIXIME
     Indication: URINARY TRACT INFECTION
     Dosage: UNK
     Dates: start: 201801, end: 2018

REACTIONS (4)
  - Urinary tract infection [Not Recovered/Not Resolved]
  - Underdose [Unknown]
  - Drug administered to patient of inappropriate age [Not Recovered/Not Resolved]
  - Product quality issue [Recovered/Resolved]

NARRATIVE: CASE EVENT DATE: 201801
